FAERS Safety Report 8030399-9 (Version None)
Quarter: 2012Q1

REPORT INFORMATION
  Report Type: 
  Country: None (occurrence: None)
  Receive Date: 20120109
  Receipt Date: 20120109
  Transmission Date: 20120608
  Serious: No
  Sender: FDA-Public Use
  Company Number: None

PATIENT
  Age: 30 Year
  Sex: Female
  Weight: 119.74 kg

DRUGS (1)
  1. ATENOLOL [Suspect]
     Indication: TACHYCARDIA
     Dosage: 1
     Route: 002
     Dates: start: 20120104, end: 20120105

REACTIONS (2)
  - OEDEMA PERIPHERAL [None]
  - SWELLING FACE [None]
